FAERS Safety Report 25740415 (Version 2)
Quarter: 2025Q3

REPORT INFORMATION
  Report Type: Report from Study
  Country: EG (occurrence: EG)
  Receive Date: 20250829
  Receipt Date: 20250922
  Transmission Date: 20251021
  Serious: Yes (Hospitalization, Other)
  Sender: NOVARTIS
  Company Number: EG-002147023-NVSC2025EG125680

PATIENT
  Sex: Male
  Weight: 100 kg

DRUGS (8)
  1. ENTRESTO [Suspect]
     Active Substance: SACUBITRIL\VALSARTAN
     Indication: Cardiac failure
     Dosage: 200 MG, QD (1 TABLET ONCE DAILY)
     Route: 048
  2. ENTRESTO [Suspect]
     Active Substance: SACUBITRIL\VALSARTAN
     Dosage: 100 MG, BID (CONCENTRATION 100 MG) (END DATE: ONE YEAR FROM THE START DATE)
     Route: 048
     Dates: start: 2020
  3. ENTRESTO [Suspect]
     Active Substance: SACUBITRIL\VALSARTAN
     Dosage: 200 MG, BID (CONCENTRATION 200MG) (START DATE: 4 YEARS AGO (FROM MRD 24 AUG 2025) END DATE: 1 YEAR A
     Route: 048
  4. ENTRESTO [Suspect]
     Active Substance: SACUBITRIL\VALSARTAN
     Dosage: 50 MG, BID (CONCENTRATION 50 MG) (1 TABLET TWICE A DAY) (START DATE: 1 YEAR AGO, FROM (MRD 24 AUG 20
     Route: 048
  5. DAPAGLIFLOZIN [Concomitant]
     Active Substance: DAPAGLIFLOZIN
     Indication: Cardiac disorder
     Dosage: UNK, QD (TABLET) (START DATE: 2 YEARS AGO FROM MRD 24 AUG 2025)
     Route: 048
  6. ATORVASTATIN CALCIUM\EZETIMIBE [Concomitant]
     Active Substance: ATORVASTATIN CALCIUM\EZETIMIBE
     Indication: Blood cholesterol abnormal
     Dosage: UNK, QD (TABLET) (START DATE: 4 YEARS AGO FROM MRD 24 AUG 2025)
     Route: 048
  7. ASPIRIN [Concomitant]
     Active Substance: ASPIRIN
     Indication: Blood disorder
     Dosage: UNK, (TABLET) QD
     Route: 048
     Dates: start: 2019
  8. PLAVIX [Concomitant]
     Active Substance: CLOPIDOGREL BISULFATE
     Indication: Blood disorder
     Dosage: UNK, QD (TABLET) (START DATE: 4 YEARS AGO FROM MRD 24 AUG 2025)
     Route: 048

REACTIONS (11)
  - Thrombosis [Recovered/Resolved]
  - Hypotension [Recovered/Resolved]
  - Headache [Recovered/Resolved]
  - Somnolence [Recovered/Resolved]
  - Fatigue [Recovered/Resolved]
  - Dyspnoea [Recovered/Resolved]
  - Dyspnoea [Recovered/Resolved]
  - Dyspnoea [Recovered/Resolved]
  - Dyspnoea [Recovered/Resolved]
  - Insomnia [Unknown]
  - Off label use [Unknown]

NARRATIVE: CASE EVENT DATE: 20210101
